FAERS Safety Report 4693326-8 (Version None)
Quarter: 2005Q2

REPORT INFORMATION
  Report Type: 
  Country: None (occurrence: None)
  Receive Date: 20050617
  Receipt Date: 20041105
  Transmission Date: 20051028
  Serious: Yes (Hospitalization, Disabling, Other)
  Sender: FDA-Public Use
  Company Number: DE-MERCK-0411DEU00119

PATIENT
  Age: 60 Year
  Sex: Male
  Weight: 76 kg

DRUGS (3)
  1. VIOXX [Suspect]
     Indication: CERVICOBRACHIAL SYNDROME
     Route: 048
     Dates: start: 20000101, end: 20030101
  2. VIOXX [Suspect]
     Indication: ORCHITIS
     Route: 048
     Dates: start: 20000101, end: 20030101
  3. ASPIRIN [Concomitant]
     Route: 048
     Dates: end: 20030301

REACTIONS (8)
  - CEREBROVASCULAR ACCIDENT [None]
  - DIABETES MELLITUS INADEQUATE CONTROL [None]
  - DIVERTICULUM INTESTINAL [None]
  - EPIDIDYMITIS [None]
  - FATIGUE [None]
  - MENTAL DISORDER DUE TO A GENERAL MEDICAL CONDITION [None]
  - VASCULAR ENCEPHALOPATHY [None]
  - VERTIGO [None]
